FAERS Safety Report 20125560 (Version 3)
Quarter: 2022Q1

REPORT INFORMATION
  Report Type: Spontaneous
  Country: PL (occurrence: PL)
  Receive Date: 20211129
  Receipt Date: 20220121
  Transmission Date: 20220423
  Serious: Yes (Other)
  Sender: FDA-Public Use
  Company Number: PL-SUN PHARMACEUTICAL INDUSTRIES LTD-2021RR-311918

PATIENT
  Age: 43 Year
  Sex: Male

DRUGS (18)
  1. BUPRENORPHINE [Suspect]
     Active Substance: BUPRENORPHINE
     Indication: Neuralgia
     Dosage: 35 MICROGRAM, QH (35 MICROGRAM PER HOUR, AS PATCH)
     Route: 062
  2. DULOXETINE [Suspect]
     Active Substance: DULOXETINE
     Indication: Neuralgia
     Dosage: 60 MILLIGRAM, QD (1/DAY)
     Route: 065
  3. DULOXETINE [Suspect]
     Active Substance: DULOXETINE
     Indication: Diabetic neuropathy
  4. DULOXETINE [Suspect]
     Active Substance: DULOXETINE
     Indication: Pain
  5. PREGABALIN [Suspect]
     Active Substance: PREGABALIN
     Indication: Neuralgia
     Dosage: 300 MILLIGRAM, QD
     Route: 065
  6. PREGABALIN [Suspect]
     Active Substance: PREGABALIN
     Indication: Pain
  7. TRAMADOL [Suspect]
     Active Substance: TRAMADOL
     Indication: Pain
     Dosage: 400 MILLIGRAM, 1/DAY
     Route: 065
  8. TRAMADOL [Suspect]
     Active Substance: TRAMADOL
     Indication: Neuralgia
  9. GABAPENTIN [Suspect]
     Active Substance: GABAPENTIN
     Indication: Product used for unknown indication
     Dosage: UNK
     Route: 065
  10. CARBAMAZEPINE [Suspect]
     Active Substance: CARBAMAZEPINE
     Indication: Neuralgia
     Dosage: 800 MILLIGRAM, 1/DAY
     Route: 065
  11. CARBAMAZEPINE [Suspect]
     Active Substance: CARBAMAZEPINE
     Indication: Pain
  12. BUPRENORPHINE [Suspect]
     Active Substance: BUPRENORPHINE
     Indication: Neuralgia
     Dosage: 35 MICROGRAM, 1/HR (35 UG, QH (35 MICROGRAM PER HOUR, AS PATCH))
     Route: 062
  13. BUPRENORPHINE [Suspect]
     Active Substance: BUPRENORPHINE
     Indication: Pain
  14. ACETAMINOPHEN [Suspect]
     Active Substance: ACETAMINOPHEN
     Indication: Pain
     Dosage: 2 GRAM, 1/DAY
     Route: 065
  15. ACETAMINOPHEN [Suspect]
     Active Substance: ACETAMINOPHEN
     Indication: Neuralgia
  16. PANCRELIPASE [Suspect]
     Active Substance: PANCRELIPASE
     Indication: Neuralgia
     Dosage: UNK,1/DAY (LIPANCREA 16,000 UNITS 3 TIMES A DAY WITH MEALS)
     Route: 065
  17. TRAZODONE [Concomitant]
     Active Substance: TRAZODONE HYDROCHLORIDE
     Indication: Sleep disorder
     Dosage: UNK (2 HRS BEFORE GOING TO SLEEP)
     Route: 065
  18. CAPSAICIN [Concomitant]
     Active Substance: CAPSAICIN
     Indication: Product used for unknown indication
     Dosage: 3 DOSAGE FORM (3 PATCHES USED)
     Route: 065

REACTIONS (7)
  - Drug ineffective [Recovering/Resolving]
  - Oedema peripheral [Unknown]
  - Dizziness [Recovering/Resolving]
  - Joint swelling [Recovering/Resolving]
  - Peripheral swelling [Recovered/Resolved]
  - Sleep disorder [Unknown]
  - Drug intolerance [Recovered/Resolved]
